FAERS Safety Report 15056406 (Version 1)
Quarter: 2018Q2

REPORT INFORMATION
  Report Type: Spontaneous
  Country: US (occurrence: US)
  Receive Date: 20180604
  Receipt Date: 20180604
  Transmission Date: 20180711
  Serious: Yes (Hospitalization)
  Sender: FDA-Public Use
  Company Number: None

PATIENT
  Age: 67 Year
  Sex: Female

DRUGS (1)
  1. REBIF [Suspect]
     Active Substance: INTERFERON BETA-1A
     Indication: MULTIPLE SCLEROSIS
     Dosage: ?          OTHER FREQUENCY:THREE TIMES A WEEK;?
     Route: 058
     Dates: start: 20180223

REACTIONS (6)
  - Diarrhoea haemorrhagic [None]
  - Incisional hernia [None]
  - Crohn^s disease [None]
  - Patella fracture [None]
  - Muscular weakness [None]
  - Bronchiectasis [None]
